FAERS Safety Report 20751864 (Version 1)
Quarter: 2022Q2

REPORT INFORMATION
  Report Type: Spontaneous
  Country: CN (occurrence: None)
  Receive Date: 20220426
  Receipt Date: 20220426
  Transmission Date: 20220720
  Serious: Yes (Other)
  Sender: FDA-Public Use
  Company Number: CN-ROCHE-3082784

PATIENT
  Age: 32 Year
  Sex: Female

DRUGS (13)
  1. VENETOCLAX [Suspect]
     Active Substance: VENETOCLAX
     Indication: Diffuse large B-cell lymphoma
     Route: 065
     Dates: start: 20220225
  2. RITUXIMAB [Concomitant]
     Active Substance: RITUXIMAB
     Indication: Diffuse large B-cell lymphoma
     Dosage: D6
     Route: 065
     Dates: start: 20220123
  3. RITUXIMAB [Concomitant]
     Active Substance: RITUXIMAB
     Dates: start: 20220215
  4. CYCLOPHOSPHAMIDE [Concomitant]
     Active Substance: CYCLOPHOSPHAMIDE
     Indication: Diffuse large B-cell lymphoma
     Dosage: D1-D3
     Dates: start: 20220123
  5. DOXORUBICIN HYDROCHLORIDE [Concomitant]
     Active Substance: DOXORUBICIN HYDROCHLORIDE
     Indication: Diffuse large B-cell lymphoma
     Dosage: D1-D2
     Dates: start: 20220123
  6. VINCRISTINE [Concomitant]
     Active Substance: VINCRISTINE
     Indication: Diffuse large B-cell lymphoma
     Dosage: D1-D2
     Dates: start: 20220123
  7. PREDNISONE [Concomitant]
     Active Substance: PREDNISONE
     Indication: Diffuse large B-cell lymphoma
     Dosage: D1-D5
     Dates: start: 20220123
  8. DEXAMETHASONE [Concomitant]
     Active Substance: DEXAMETHASONE
     Indication: Diffuse large B-cell lymphoma
     Dosage: D1-D4
     Dates: start: 20220215
  9. CISPLATIN [Concomitant]
     Active Substance: CISPLATIN
     Indication: Diffuse large B-cell lymphoma
     Dosage: D1
     Dates: start: 20220215
  10. CISPLATIN [Concomitant]
     Active Substance: CISPLATIN
     Dosage: D1-D4
     Dates: start: 20220215
  11. CYTARABINE [Concomitant]
     Active Substance: CYTARABINE
     Indication: Diffuse large B-cell lymphoma
     Dosage: D2
     Dates: start: 20220215
  12. CYTARABINE [Concomitant]
     Active Substance: CYTARABINE
     Dosage: D1-D4
     Dates: start: 20220215
  13. DECITABINE [Concomitant]
     Active Substance: DECITABINE
     Indication: Diffuse large B-cell lymphoma
     Dosage: D1-D5
     Dates: start: 20220402

REACTIONS (1)
  - Myelosuppression [Unknown]
